FAERS Safety Report 8840451 (Version 1)
Quarter: 2012Q4

REPORT INFORMATION
  Report Type: Report from Study
  Country: US (occurrence: US)
  Receive Date: 20121015
  Receipt Date: 20121015
  Transmission Date: 20130627
  Serious: Yes (Life-Threatening, Hospitalization)
  Sender: FDA-Public Use
  Company Number: US-ASTRAZENECA-2012SE78440

PATIENT
  Age: 66 Year
  Sex: Male

DRUGS (10)
  1. CASODEX [Suspect]
     Indication: PROSTATE CANCER
     Route: 048
     Dates: start: 20120612
  2. TAXOTERE [Suspect]
     Indication: PROSTATE CANCER
     Route: 042
     Dates: start: 20120614, end: 20120726
  3. TAXOTERE [Suspect]
     Indication: PROSTATE CANCER
     Route: 042
     Dates: start: 20120816, end: 20120927
  4. RADIOTHERAPY [Suspect]
     Indication: PROSTATE CANCER
     Dates: end: 20121009
  5. EFFEXOR [Concomitant]
  6. MULTIVITAMINS [Concomitant]
  7. SAW PALMETTO [Concomitant]
  8. COQ10 [Concomitant]
  9. NICOTINE PATCH [Concomitant]
  10. ZOFRAN [Concomitant]
     Dosage: AS NEEDED

REACTIONS (2)
  - Pulmonary embolism [Not Recovered/Not Resolved]
  - Deep vein thrombosis [Not Recovered/Not Resolved]
